FAERS Safety Report 23911370 (Version 1)
Quarter: 2024Q2

REPORT INFORMATION
  Report Type: Report from Study
  Country: BR (occurrence: BR)
  Receive Date: 20240528
  Receipt Date: 20240528
  Transmission Date: 20240716
  Serious: Yes (Death, Hospitalization, Other)
  Sender: FDA-Public Use
  Company Number: BR-BAYER-2024A056077

PATIENT
  Age: 54 Year
  Sex: Male

DRUGS (3)
  1. NEXAVAR [Suspect]
     Active Substance: SORAFENIB
     Indication: Renal cell carcinoma
     Dosage: 800 MG DAILY
     Dates: start: 20240215, end: 20240415
  2. DEXAMETHASONE [Concomitant]
     Active Substance: DEXAMETHASONE
     Dosage: UNK
  3. MORPHINE [Concomitant]
     Active Substance: MORPHINE
     Indication: Pain
     Dosage: UNK

REACTIONS (13)
  - Death [Fatal]
  - Renal cancer [None]
  - Metastases to lung [Not Recovered/Not Resolved]
  - Metastases to bone [Not Recovered/Not Resolved]
  - Pneumonia [Unknown]
  - Pyrexia [Unknown]
  - Peripheral swelling [Unknown]
  - Thrombosis [Unknown]
  - Dermatitis allergic [Recovering/Resolving]
  - Diarrhoea [Unknown]
  - Ageusia [Unknown]
  - Hair colour changes [Unknown]
  - Gingival pain [Unknown]

NARRATIVE: CASE EVENT DATE: 20240201
